FAERS Safety Report 9571422 (Version 1)
Quarter: 2013Q3

REPORT INFORMATION
  Report Type: Spontaneous
  Country: US (occurrence: None)
  Receive Date: 20130927
  Receipt Date: 20130927
  Transmission Date: 20140515
  Serious: Yes (Disabling)
  Sender: FDA-Public Use
  Company Number: None

PATIENT
  Age: 77 Year
  Sex: Male
  Weight: 104.33 kg

DRUGS (11)
  1. FINASTERIDE [Suspect]
     Dosage: 2 TABS DAY, 2, MOUTH
     Route: 048
     Dates: start: 20130826, end: 20130829
  2. PANTOPRAZOLE [Concomitant]
  3. ALLIPURINOL [Concomitant]
  4. CRESTOR [Concomitant]
  5. BISOPROLOL [Concomitant]
  6. DONEPEZIL [Concomitant]
  7. TAMSULOSIN [Concomitant]
  8. ASPIRIN [Concomitant]
  9. CENTRUM SILVER MULTIVIMIN [Concomitant]
  10. CALCIUM [Concomitant]
  11. VIT D3 [Concomitant]

REACTIONS (4)
  - Decreased appetite [None]
  - Weight decreased [None]
  - Dysuria [None]
  - Pollakiuria [None]
